FAERS Safety Report 4871362-6 (Version None)
Quarter: 2006Q1

REPORT INFORMATION
  Report Type: 
  Country: None (occurrence: None)
  Receive Date: 20060103
  Receipt Date: 20051005
  Transmission Date: 20060701
  Serious: Yes (Hospitalization)
  Sender: FDA-Public Use
  Company Number: US-MERCK-0510USA04530

PATIENT
  Sex: Female
  Weight: 83 kg

DRUGS (5)
  1. VIOXX [Suspect]
     Indication: ARTHRITIS
     Route: 048
     Dates: start: 20010401, end: 20031001
  2. VIOXX [Suspect]
     Route: 048
     Dates: start: 20010401, end: 20031001
  3. LISINOPRIL [Concomitant]
     Route: 065
  4. LIPITOR [Concomitant]
     Route: 065
  5. [THERAPY UNSPECIFIED] [Concomitant]
     Route: 065

REACTIONS (2)
  - AMNESIA [None]
  - CARDIOVASCULAR DISORDER [None]
